FAERS Safety Report 6396364-2 (Version None)
Quarter: 2009Q4

REPORT INFORMATION
  Report Type: 
  Country: None (occurrence: None)
  Receive Date: 20091012
  Receipt Date: 20091006
  Transmission Date: 20100525
  Serious: Yes (Other)
  Sender: FDA-Public Use
  Company Number: PHHY2009SE43120

PATIENT
  Age: 60 Year
  Sex: Male

DRUGS (3)
  1. METOPROLOL [Suspect]
     Indication: HYPERTENSION
     Dosage: UNK
  2. HYDRALAZINE HCL [Suspect]
     Indication: HYPERTENSION
     Dosage: UNK
  3. CHLORTHALIDONE [Concomitant]
     Indication: HYPERTENSION

REACTIONS (2)
  - DEAFNESS NEUROSENSORY [None]
  - TINNITUS [None]
